FAERS Safety Report 5217233-7 (Version None)
Quarter: 2007Q1

REPORT INFORMATION
  Report Type: 
  Country: None (occurrence: None)
  Receive Date: 20070119
  Receipt Date: 20070103
  Transmission Date: 20070707
  Serious: Yes (Life-Threatening, Hospitalization)
  Sender: FDA-Public Use
  Company Number: DSA_29214_2007

PATIENT
  Age: 16 Year
  Sex: Male

DRUGS (2)
  1. TAVOR [Suspect]
     Dosage: 50 MG ONCE PO
     Route: 048
     Dates: start: 20070102, end: 20070102
  2. PARACETAMOL [Suspect]
     Dosage: 7500 MG ONCE PO
     Route: 048
     Dates: start: 20070102, end: 20070102

REACTIONS (5)
  - OVERDOSE [None]
  - PALLOR [None]
  - SOMNOLENCE [None]
  - SUICIDE ATTEMPT [None]
  - VOMITING [None]
